FAERS Safety Report 8879980 (Version 1)
Quarter: 2012Q4

REPORT INFORMATION
  Report Type: 
  Country: FR (occurrence: FR)
  Receive Date: 20121101
  Receipt Date: 20121101
  Transmission Date: 20130627
  Serious: Yes (Hospitalization)
  Sender: FDA-Public Use
  Company Number: FR-AMGEN-FRASP2012069122

PATIENT
  Age: 29 Year
  Sex: Female

DRUGS (5)
  1. ENBREL [Suspect]
     Indication: PRODUCT USED FOR UNKNOWN INDICATION
     Dosage: 50 mg, 2x/week
     Route: 058
     Dates: start: 201112, end: 201208
  2. INEXIUM /01479302/ [Concomitant]
     Dosage: 40 mg, qd
     Route: 048
  3. THERALENE [Concomitant]
     Dosage: 10 drops in evening
     Route: 048
  4. GAVISCON                           /01405501/ [Concomitant]
     Dosage: 1 DF, 3x/day
     Route: 048
  5. MOBIC [Concomitant]
     Indication: PAIN
     Dosage: UNK

REACTIONS (1)
  - Myelitis [Recovered/Resolved]
